FAERS Safety Report 20473462 (Version 1)
Quarter: 2022Q1

REPORT INFORMATION
  Report Type: Spontaneous
  Country: US (occurrence: US)
  Receive Date: 20220215
  Receipt Date: 20220215
  Transmission Date: 20220424
  Serious: No
  Sender: FDA-Public Use
  Company Number: US-Blueprint Medicines Corporation-SP-US-2022-000369

PATIENT
  Age: 63 Year
  Sex: Male

DRUGS (1)
  1. AYVAKIT [Suspect]
     Active Substance: AVAPRITINIB
     Indication: Systemic mastocytosis
     Route: 048
     Dates: start: 20220126

REACTIONS (5)
  - Fatigue [Unknown]
  - Periorbital swelling [Unknown]
  - Constipation [Unknown]
  - Diarrhoea [Unknown]
  - Pain [Unknown]
